FAERS Safety Report 5611461-4 (Version None)
Quarter: 2008Q1

REPORT INFORMATION
  Report Type: 
  Country: None (occurrence: None)
  Receive Date: 20080201
  Receipt Date: 20080121
  Transmission Date: 20080703
  Serious: Yes (Hospitalization)
  Sender: FDA-Public Use
  Company Number: FR-PFIZER INC-2008006146

PATIENT
  Sex: Male

DRUGS (11)
  1. VFEND [Suspect]
     Indication: ASPERGILLOSIS
     Route: 048
     Dates: start: 20071109, end: 20071110
  2. VFEND [Suspect]
     Route: 048
     Dates: start: 20071111, end: 20071123
  3. ACUPAN [Suspect]
     Indication: PAIN
     Route: 042
     Dates: start: 20071105, end: 20071112
  4. TAZOCILLINE [Concomitant]
  5. LOVENOX [Concomitant]
  6. MUCOMYST [Concomitant]
  7. CIPROFLOXACIN [Concomitant]
  8. IPRATROPIUM BROMIDE [Concomitant]
  9. SALBUTAMOL SULFATE [Concomitant]
  10. TIORFAN [Concomitant]
  11. DIOSMECTITE [Concomitant]

REACTIONS (2)
  - DISORIENTATION [None]
  - HALLUCINATION, VISUAL [None]
